FAERS Safety Report 9063909 (Version 1)
Quarter: 2013Q1

REPORT INFORMATION
  Report Type: Report from Study
  Country: US (occurrence: US)
  Receive Date: 20130131
  Receipt Date: 20130131
  Transmission Date: 20140127
  Serious: No
  Sender: FDA-Public Use
  Company Number: US-ABBOTT-12P-163-0980231-00

PATIENT
  Age: 52 Year
  Sex: Female

DRUGS (15)
  1. HUMIRA [Suspect]
     Indication: PSORIATIC ARTHROPATHY
     Dates: start: 20120313
  2. HUMIRA [Suspect]
     Dates: start: 20120914
  3. PREDNISONE [Suspect]
  4. FOLIC ACID [Concomitant]
     Indication: PRODUCT USED FOR UNKNOWN INDICATION
  5. TRAMADOL [Concomitant]
     Indication: PRODUCT USED FOR UNKNOWN INDICATION
     Dosage: 4 TIMES A DAY SWITCHED TO TWICE A DAY
  6. CALCIUM PLUS D3 [Concomitant]
     Indication: PRODUCT USED FOR UNKNOWN INDICATION
  7. MULTIVITAMIN [Concomitant]
     Indication: PRODUCT USED FOR UNKNOWN INDICATION
     Dosage: DAILY
  8. PAROXETINE [Concomitant]
     Indication: ANXIETY
  9. JANTADETO [Concomitant]
     Indication: DIABETES MELLITUS
  10. CARVEDILOL [Concomitant]
     Indication: HYPERTENSION
  11. LISINOPRIL [Concomitant]
     Indication: HYPERTENSION
  12. NEXIUM [Concomitant]
     Indication: GASTROOESOPHAGEAL REFLUX DISEASE
  13. AMLODIPINE DESYLATE [Concomitant]
     Indication: HYPERTENSION
  14. ASPIRIN [Concomitant]
     Indication: PROPHYLAXIS
  15. HYDROCHLOROTHIAZIDE [Concomitant]
     Indication: HYPERTENSION

REACTIONS (9)
  - Hepatic enzyme increased [Not Recovered/Not Resolved]
  - Incorrect dose administered [Unknown]
  - Incorrect dose administered [Unknown]
  - Device malfunction [Unknown]
  - Device malfunction [Unknown]
  - Drug ineffective [Not Recovered/Not Resolved]
  - Arthralgia [Not Recovered/Not Resolved]
  - Joint swelling [Not Recovered/Not Resolved]
  - Injection site pain [Not Recovered/Not Resolved]
